FAERS Safety Report 6089625-8 (Version None)
Quarter: 2009Q1

REPORT INFORMATION
  Report Type: 
  Country: None (occurrence: None)
  Receive Date: 20090219
  Receipt Date: 20090219
  Transmission Date: 20090719
  Serious: Yes (Hospitalization)
  Sender: FDA-Public Use
  Company Number: None

PATIENT
  Sex: Female
  Weight: 94 kg

DRUGS (2)
  1. BUSULFAN 764 MG [Suspect]
     Dosage: 784 MG
  2. ETOPOSIDE [Suspect]
     Dosage: 3651 MG

REACTIONS (9)
  - ABDOMINAL ADHESIONS [None]
  - ABDOMINAL PAIN [None]
  - ANOREXIA [None]
  - DIARRHOEA [None]
  - ENTERITIS [None]
  - HYPOPHAGIA [None]
  - ILEUS [None]
  - SMALL INTESTINAL OBSTRUCTION [None]
  - VOMITING [None]
